FAERS Safety Report 8522107-X (Version None)
Quarter: 2012Q3

REPORT INFORMATION
  Report Type: 
  Country: None (occurrence: None)
  Receive Date: 20120719
  Receipt Date: 20120711
  Transmission Date: 20120928
  Serious: Yes (Other)
  Sender: FDA-Public Use
  Company Number: SE-JNJFOC-20100505316

PATIENT
  Age: 62 Year
  Sex: Male

DRUGS (2)
  1. METHOTREXATE [Concomitant]
     Route: 042
  2. REMICADE [Suspect]
     Indication: SPONDYLITIS
     Route: 042
     Dates: start: 20071018

REACTIONS (1)
  - BOWEN'S DISEASE [None]
